FAERS Safety Report 18212944 (Version 3)
Quarter: 2021Q2

REPORT INFORMATION
  Report Type: Spontaneous
  Country: GB (occurrence: GB)
  Receive Date: 20200831
  Receipt Date: 20210408
  Transmission Date: 20210717
  Serious: Yes (Other)
  Sender: FDA-Public Use
  Company Number: GB-PFIZER INC-2020332528

PATIENT
  Age: 88 Year
  Sex: Male

DRUGS (18)
  1. AMLODIPINE BESILATE [Suspect]
     Active Substance: AMLODIPINE BESYLATE
     Indication: PROSTATE CANCER
     Dosage: UNK
  2. ATORVASTATIN CALCIUM. [Suspect]
     Active Substance: ATORVASTATIN CALCIUM
     Indication: PROSTATE CANCER
     Dosage: UNK
  3. LISINOPRIL. [Suspect]
     Active Substance: LISINOPRIL
     Indication: PROSTATE CANCER
     Dosage: UNK
     Route: 065
  4. LISINOPRIL. [Suspect]
     Active Substance: LISINOPRIL
     Indication: PULMONARY EMBOLISM
  5. STATIN [TIABENDAZOLE] [Concomitant]
  6. CARBOPLATIN/ETOPOSIDE [Concomitant]
     Indication: CHEMOTHERAPY
     Dosage: UNK
  7. CARBOPLATIN/ETOPOSIDE [Concomitant]
     Indication: PROSTATE CANCER
     Dosage: UNK (4 CYCLES)
     Dates: start: 201912
  8. LUPRON DEPOT [Suspect]
     Active Substance: LEUPROLIDE ACETATE
     Indication: PROSTATE CANCER
     Dosage: UNK
     Dates: start: 2018
  9. ALLOPURINOL. [Suspect]
     Active Substance: ALLOPURINOL
     Indication: PULMONARY EMBOLISM
  10. SIMVASTATIN. [Suspect]
     Active Substance: SIMVASTATIN
     Indication: PULMONARY EMBOLISM
  11. AMLODIPINE BESILATE [Suspect]
     Active Substance: AMLODIPINE BESYLATE
     Indication: PULMONARY EMBOLISM
  12. LUPRON DEPOT [Suspect]
     Active Substance: LEUPROLIDE ACETATE
     Indication: PULMONARY EMBOLISM
  13. STATIN [NYSTATIN] [Suspect]
     Active Substance: NYSTATIN
     Indication: PULMONARY EMBOLISM
     Dosage: UNK
  14. ALLOPURINOL. [Suspect]
     Active Substance: ALLOPURINOL
     Indication: PROSTATE CANCER
     Dosage: UNK
  15. STATIN [NYSTATIN] [Suspect]
     Active Substance: NYSTATIN
     Indication: PROSTATE CANCER
  16. EDOXABAN [Suspect]
     Active Substance: EDOXABAN TOSYLATE
     Indication: PULMONARY EMBOLISM
     Dosage: UNK
  17. LEUPRORELIN [Suspect]
     Active Substance: LEUPROLIDE ACETATE
     Indication: PULMONARY EMBOLISM
     Dosage: UNK
     Dates: start: 2018
  18. SIMVASTATIN. [Suspect]
     Active Substance: SIMVASTATIN
     Indication: PROSTATE CANCER
     Dosage: UNK

REACTIONS (10)
  - Pelvic mass [Unknown]
  - Malignant transformation [Unknown]
  - Lymphadenopathy [Unknown]
  - Hydronephrosis [Unknown]
  - Prostate cancer recurrent [Unknown]
  - Disease progression [Unknown]
  - Pulmonary embolism [Unknown]
  - Blood electrolytes abnormal [Unknown]
  - Blood urea abnormal [Unknown]
  - Off label use [Unknown]

NARRATIVE: CASE EVENT DATE: 201912
